FAERS Safety Report 4727421-1 (Version None)
Quarter: 2005Q3

REPORT INFORMATION
  Report Type: 
  Country: None (occurrence: None)
  Receive Date: 20050725
  Receipt Date: 20050725
  Transmission Date: 20060218
  Serious: Yes (Hospitalization)
  Sender: FDA-Public Use
  Company Number: None

PATIENT
  Age: 62 Year
  Sex: Female
  Weight: 56.6996 kg

DRUGS (12)
  1. LEVOFLOXACIN [Suspect]
     Indication: BRONCHITIS ACUTE
     Dosage: 500 MG   DAILY   ORAL
     Route: 048
     Dates: start: 20050708, end: 20050718
  2. LEVOFLOXACIN [Concomitant]
  3. PREDNISONE [Concomitant]
  4. ASPIRIN [Concomitant]
  5. DILTIAZEM [Concomitant]
  6. LEVOTHYROXINE [Concomitant]
  7. PANTOPRAZOLE [Concomitant]
  8. PAROXETINE HCL [Concomitant]
  9. IPRATROPIUM/ALBUTEROL [Concomitant]
  10. ZONISAMIDE [Concomitant]
  11. BUSPIRONE [Concomitant]
  12. RISPERIDONE [Concomitant]

REACTIONS (1)
  - TENDON RUPTURE [None]
